FAERS Safety Report 19236114 (Version 2)
Quarter: 2021Q2

REPORT INFORMATION
  Report Type: Spontaneous
  Country: US (occurrence: US)
  Receive Date: 20210510
  Receipt Date: 20210526
  Transmission Date: 20210717
  Serious: No
  Sender: FDA-Public Use
  Company Number: US-GLAXOSMITHKLINE-US2021097105

PATIENT
  Sex: Female

DRUGS (1)
  1. NUCALA [Suspect]
     Active Substance: MEPOLIZUMAB
     Indication: EOSINOPHILIC GRANULOMATOSIS WITH POLYANGIITIS
     Dosage: UNK, Z (3 AUTOINJECTORS ONCE A MONTH UNDER THE SKIN)
     Route: 058
     Dates: start: 202102

REACTIONS (4)
  - Exposure via skin contact [Unknown]
  - Product complaint [Unknown]
  - Accidental exposure to product [Unknown]
  - Underdose [Unknown]
